FAERS Safety Report 5103190-0 (Version None)
Quarter: 2006Q3

REPORT INFORMATION
  Report Type: 
  Country: None (occurrence: None)
  Receive Date: 20060912
  Receipt Date: 20060912
  Transmission Date: 20061208
  Serious: No
  Sender: FDA-Public Use
  Company Number: None

PATIENT
  Age: 52 Year
  Sex: Female
  Weight: 78.9259 kg

DRUGS (3)
  1. VOLTAREN-XR [Suspect]
     Indication: RHEUMATOID ARTHRITIS
     Dosage: 100 XR BID PO
     Route: 048
  2. METHOTREXATE [Concomitant]
  3. ENBREL [Concomitant]

REACTIONS (4)
  - DRUG INEFFECTIVE [None]
  - NAUSEA [None]
  - THERAPY REGIMEN CHANGED [None]
  - VOMITING [None]
